FAERS Safety Report 10056407 (Version 1)
Quarter: 2014Q2

REPORT INFORMATION
  Report Type: Spontaneous
  Country: NL (occurrence: NL)
  Receive Date: 20140403
  Receipt Date: 20140403
  Transmission Date: 20141212
  Serious: Yes (Life-Threatening)
  Sender: FDA-Public Use
  Company Number: NL-009507513-1403NLD013847

PATIENT
  Age: 66 Year
  Sex: Male
  Weight: 110 kg

DRUGS (4)
  1. TRYPTIZOL [Suspect]
     Route: 048
  2. TOFRANIL [Suspect]
     Indication: DEPRESSION
     Dosage: , EXTRA INFO:  VERSCHILLENDE MERKEN
     Route: 048
     Dates: start: 1967
  3. CIPRAMIL [Suspect]
     Indication: PRODUCT USED FOR UNKNOWN INDICATION
     Route: 048
     Dates: start: 1967
  4. LARGACTIL [Suspect]
     Indication: PRODUCT USED FOR UNKNOWN INDICATION
     Route: 048

REACTIONS (1)
  - Loss of libido [Not Recovered/Not Resolved]
